FAERS Safety Report 23367426 (Version 1)
Quarter: 2024Q1

REPORT INFORMATION
  Report Type: Spontaneous
  Country: US (occurrence: None)
  Receive Date: 20240104
  Receipt Date: 20240104
  Transmission Date: 20240410
  Serious: Yes (Death)
  Sender: FDA-Public Use
  Company Number: None

PATIENT
  Age: 0 Year
  Sex: Female

DRUGS (1)
  1. SILDENAFIL [Suspect]
     Active Substance: SILDENAFIL
     Dosage: OTHER QUANTITY : 10MG/ML;?FREQUENCY : EVERY 8 HOURS;?
     Route: 048
     Dates: start: 20231223

REACTIONS (1)
  - Heart disease congenital [None]

NARRATIVE: CASE EVENT DATE: 20231227
